FAERS Safety Report 5174913-X (Version None)
Quarter: 2006Q4

REPORT INFORMATION
  Report Type: 
  Country: None (occurrence: None)
  Receive Date: 20061206
  Receipt Date: 20061127
  Transmission Date: 20070319
  Serious: Yes (Hospitalization)
  Sender: FDA-Public Use
  Company Number: 2006145717

PATIENT
  Age: 47 Year
  Sex: Female

DRUGS (2)
  1. ALPRAZOLAM [Suspect]
     Indication: PANIC ATTACK
     Dosage: 2 MG (1 MG, 2 IN 1 D), ORAL
     Route: 048
     Dates: start: 20051101
  2. CLONAZEPAM [Concomitant]

REACTIONS (11)
  - CHEST PAIN [None]
  - CYST [None]
  - DIZZINESS [None]
  - DRUG DOSE OMISSION [None]
  - DYSPHONIA [None]
  - FEELING ABNORMAL [None]
  - HYPOAESTHESIA [None]
  - HYPOAESTHESIA FACIAL [None]
  - NERVOUSNESS [None]
  - PAIN [None]
  - SUTURE RELATED COMPLICATION [None]
